FAERS Safety Report 19145513 (Version 3)
Quarter: 2021Q3

REPORT INFORMATION
  Report Type: Spontaneous
  Country: CZ (occurrence: CZ)
  Receive Date: 20210416
  Receipt Date: 20210907
  Transmission Date: 20211014
  Serious: Yes (Other)
  Sender: FDA-Public Use
  Company Number: CZ-TEVA-2021-CZ-1900936

PATIENT
  Age: 35 Year
  Sex: Female
  Weight: 60 kg

DRUGS (4)
  1. VIGIL (MODAFINIL) [Suspect]
     Active Substance: MODAFINIL
     Indication: NARCOLEPSY
     Dosage: 1 DOSAGE FORMS DAILY; 1?0?0
     Route: 048
  2. APIDRA [Concomitant]
     Active Substance: INSULIN GLULISINE
  3. LANTUS [Concomitant]
     Active Substance: INSULIN GLARGINE
  4. VASOCARDIN [Concomitant]
     Active Substance: METOPROLOL
     Indication: TACHYCARDIA

REACTIONS (5)
  - Vertigo [Recovered/Resolved]
  - Haemorrhage [Recovered/Resolved]
  - Haematoma [Recovered/Resolved]
  - Thrombocytopenia [Recovered/Resolved]
  - Syncope [Recovered/Resolved]

NARRATIVE: CASE EVENT DATE: 2011
